FAERS Safety Report 4755066-6 (Version None)
Quarter: 2005Q3

REPORT INFORMATION
  Report Type: 
  Country: None (occurrence: None)
  Receive Date: 20050829
  Receipt Date: 20050818
  Transmission Date: 20060218
  Serious: Yes (Hospitalization, Other)
  Sender: FDA-Public Use
  Company Number: PHNU2005DE02930

PATIENT
  Sex: Female

DRUGS (28)
  1. BASILIXIMAB [Suspect]
     Indication: HEART TRANSPLANT
     Dosage: 20 MG, ONCE/SINGLE
     Route: 042
     Dates: start: 20041222
  2. BASILIXIMAB [Suspect]
     Dosage: 20 MG, ONCE/SINGLE
     Dates: start: 20041226
  3. CYCLOSPORINE [Suspect]
     Indication: HEART TRANSPLANT
     Dosage: 50 MG OVER 24 HOURS
     Route: 042
     Dates: start: 20041222, end: 20041223
  4. CERTICAN [Suspect]
     Indication: HEART TRANSPLANT
     Dosage: UNK, UNK
     Dates: start: 20041223
  5. CERTICAN [Suspect]
     Dosage: 1 MG, QD
  6. METHYLPREDNISOLONE [Concomitant]
     Indication: IMMUNOSUPPRESSION
     Dosage: 125 MG, Q12H
     Route: 042
     Dates: start: 20041222, end: 20041223
  7. PREDNISOLONE [Concomitant]
     Indication: IMMUNOSUPPRESSION
     Dosage: 25 MG DAILY
     Route: 048
     Dates: start: 20041223, end: 20041223
  8. PREDNISOLONE [Concomitant]
     Dosage: 25 MG/DAY
     Route: 048
     Dates: start: 20041224
  9. PREDNISOLONE [Concomitant]
     Dosage: 10 MG/DAY
     Route: 048
  10. AMPICILLIN [Suspect]
     Indication: PYREXIA
     Dates: start: 20050101
  11. SULBACTAM [Suspect]
     Indication: PYREXIA
     Dates: start: 20050101
  12. LEVOFLOXACIN [Suspect]
     Indication: PYREXIA
     Dates: start: 20050101
  13. CYCLOSPORINE [Suspect]
     Dosage: 200 MG, BID
     Route: 048
     Dates: start: 20041223, end: 20041201
  14. CYCLOSPORINE [Suspect]
     Dosage: DOSAGE DECREASED
     Route: 048
     Dates: start: 20041201
  15. CYCLOSPORINE [Suspect]
     Dosage: 50 MG, BID
     Route: 048
  16. TRIMETHOPRIM [Concomitant]
     Dosage: 160 MG/DAY
     Route: 065
  17. SULFAMETHOXAZOLE [Concomitant]
     Dosage: 400 MG, QW2
     Route: 065
  18. AMPHOTERICIN B [Concomitant]
     Dosage: 40 MG/DAY
     Route: 065
  19. VALPROIC ACID [Concomitant]
     Dosage: 300 MG/DAY
     Route: 065
  20. RAMIPRIL [Concomitant]
     Dosage: 10 MG/DAY
     Route: 065
  21. RANITIDINE HCL [Concomitant]
     Dosage: 300 MG/DAY
     Route: 065
  22. AMLODIPINE [Concomitant]
     Dosage: 5 MG/DAY
     Route: 065
  23. MAGNESIUM [Concomitant]
     Dosage: 60 MVAL/DAY
     Route: 065
  24. CALCIUM GLUCONATE [Concomitant]
     Dosage: 1 G/ DAY
     Route: 065
  25. COLECALCIFEROL [Concomitant]
     Dosage: 1000 IU, QD
     Route: 065
  26. FERROUS SULFATE TAB [Concomitant]
     Dosage: 200 MG/DAY
     Route: 065
  27. MULTI-VITAMINS [Concomitant]
  28. PARACETAMOL [Concomitant]
     Dosage: UNK, PRN

REACTIONS (20)
  - ALANINE AMINOTRANSFERASE INCREASED [None]
  - ASPARTATE AMINOTRANSFERASE INCREASED [None]
  - BLOOD ALKALINE PHOSPHATASE INCREASED [None]
  - BLOOD CHOLESTEROL INCREASED [None]
  - BLOOD CREATININE INCREASED [None]
  - BLOOD LACTATE DEHYDROGENASE INCREASED [None]
  - BODY TEMPERATURE INCREASED [None]
  - CHILLS [None]
  - ENCEPHALOPATHY [None]
  - FEELING ABNORMAL [None]
  - GAMMA-GLUTAMYLTRANSFERASE INCREASED [None]
  - GLUTAMATE DEHYDROGENASE INCREASED [None]
  - GRAFT DYSFUNCTION [None]
  - GRAND MAL CONVULSION [None]
  - HYPERCHOLESTEROLAEMIA [None]
  - LIVER FUNCTION TEST ABNORMAL [None]
  - LOW DENSITY LIPOPROTEIN INCREASED [None]
  - NUCLEAR MAGNETIC RESONANCE IMAGING ABNORMAL [None]
  - PERICARDIAL EFFUSION [None]
  - RENAL FAILURE CHRONIC [None]
